FAERS Safety Report 7794065-7 (Version None)
Quarter: 2011Q4

REPORT INFORMATION
  Report Type: 
  Country: None (occurrence: None)
  Receive Date: 20111004
  Receipt Date: 20110922
  Transmission Date: 20120403
  Serious: Yes (Other)
  Sender: FDA-Public Use
  Company Number: US-JNJFOC-20110910085

PATIENT
  Sex: Female
  Weight: 49.9 kg

DRUGS (5)
  1. KEPPRA [Concomitant]
     Indication: EPILEPSY
     Route: 048
     Dates: start: 20060101
  2. REMICADE [Suspect]
     Route: 042
     Dates: start: 20100101, end: 20110912
  3. BIRTH CONTROL PILL [Concomitant]
     Indication: OVARIAN CYST
     Route: 048
     Dates: start: 20090101
  4. BIRTH CONTROL PILL [Concomitant]
     Indication: CONTRACEPTION
     Route: 048
     Dates: start: 20090101
  5. REMICADE [Suspect]
     Indication: CROHN'S DISEASE
     Route: 042
     Dates: start: 20110101

REACTIONS (4)
  - DEHYDRATION [None]
  - INFLAMMATION [None]
  - THERAPEUTIC RESPONSE DECREASED [None]
  - CROHN'S DISEASE [None]
